FAERS Safety Report 4506684-1 (Version None)
Quarter: 2004Q4

REPORT INFORMATION
  Report Type: 
  Country: None (occurrence: None)
  Receive Date: 20041122
  Receipt Date: 20041112
  Transmission Date: 20050328
  Serious: Yes (Hospitalization)
  Sender: FDA-Public Use
  Company Number: PHBS2004TW15357

PATIENT
  Age: 88 Year
  Sex: Male

DRUGS (7)
  1. LESCOL XL [Suspect]
     Indication: HYPERLIPIDAEMIA
     Dosage: 80 MG/DAY
     Route: 048
     Dates: start: 20040918, end: 20041108
  2. RIFAMPIN AND ISONIAZID [Suspect]
     Indication: PULMONARY TUBERCULOSIS
  3. COUMADIN [Concomitant]
     Dosage: 5 MG/4DAYS PER WEEK
     Route: 048
  4. COUMADIN [Concomitant]
     Dosage: 2.5 MG/3 DAYS PER WEEK
     Route: 048
  5. KONSYL PSYLLIUM [Concomitant]
     Dosage: 18 G/DAY
  6. LEDERSCON [Concomitant]
     Dosage: 3 TABLETS/DAY
     Route: 048
  7. PICETAM [Concomitant]
     Dosage: 1.2 G/DAY
     Route: 048

REACTIONS (3)
  - BLOOD CREATINE PHOSPHOKINASE INCREASED [None]
  - BLOOD CREATININE INCREASED [None]
  - DRUG INTERACTION [None]
